FAERS Safety Report 5426268-0 (Version None)
Quarter: 2007Q3

REPORT INFORMATION
  Report Type: 
  Country: None (occurrence: None)
  Receive Date: 20070731
  Receipt Date: 20070517
  Transmission Date: 20080115
  Serious: No
  Sender: FDA-Public Use
  Company Number: 2007PV029534

PATIENT
  Age: 74 Year
  Sex: Female

DRUGS (2)
  1. BYETTA [Suspect]
     Indication: TYPE 2 DIABETES MELLITUS
     Dosage: 5 UG, 2/D, SUBCUTANEOUS
     Route: 058
     Dates: start: 20070108, end: 20070126
  2. EXENATIDE 5MCG PEN, DISPOSABLE DEVICE (EENATIDE PEN (TMCG)) PEN, DISPO [Concomitant]

REACTIONS (4)
  - DRY EYE [None]
  - EYE PRURITUS [None]
  - EYE SWELLING [None]
  - RASH PRURITIC [None]
